FAERS Safety Report 7288999-X (Version None)
Quarter: 2011Q1

REPORT INFORMATION
  Report Type: 
  Country: None (occurrence: None)
  Receive Date: 20110211
  Receipt Date: 20110201
  Transmission Date: 20110831
  Serious: Yes (Other)
  Sender: FDA-Public Use
  Company Number: PHHY2011GB08712

PATIENT

DRUGS (5)
  1. NITROFURANTOIN [Suspect]
     Indication: PROPHYLAXIS
     Dosage: UNK
     Dates: start: 20060101, end: 20060901
  2. PARACETAMOL [Suspect]
  3. RAMIPRIL [Suspect]
  4. AMLODIPINE [Suspect]
     Dosage: UNK
  5. ONE-ALPHA [Suspect]

REACTIONS (4)
  - VISUAL ACUITY REDUCED [None]
  - OPTIC DISC DISORDER [None]
  - CATARACT [None]
  - INTRACRANIAL PRESSURE INCREASED [None]
